FAERS Safety Report 8555727-7 (Version None)
Quarter: 2012Q3

REPORT INFORMATION
  Report Type: 
  Country: None (occurrence: None)
  Receive Date: 20120801
  Receipt Date: 20120723
  Transmission Date: 20120928
  Serious: Yes (Life-Threatening, Hospitalization)
  Sender: FDA-Public Use
  Company Number: US-009507513-1207USA009899

PATIENT

DRUGS (4)
  1. ZOCOR [Suspect]
     Dosage: 40 MG, UNK
     Route: 048
  2. RAMIPRIL [Concomitant]
     Dosage: 5 MG, UNK
  3. CARVEDILOL [Concomitant]
     Dosage: 6.25 MG, UNK
  4. CIPROFLAXACIN [Interacting]
     Dosage: UNK

REACTIONS (2)
  - RHABDOMYOLYSIS [None]
  - DRUG INTERACTION [None]
